FAERS Safety Report 10571233 (Version 2)
Quarter: 2016Q2

REPORT INFORMATION
  Report Type: Report from Study
  Country: US (occurrence: US)
  Receive Date: 20141107
  Receipt Date: 20160429
  Transmission Date: 20160815
  Serious: No
  Sender: FDA-Public Use
  Company Number: US-VERTEX PHARMACEUTICALS-2014-004472

PATIENT
  Age: 18 Year
  Sex: Male

DRUGS (1)
  1. KALYDECO [Suspect]
     Active Substance: IVACAFTOR
     Indication: CYSTIC FIBROSIS
     Dosage: 150 MG, BID
     Route: 048
     Dates: start: 20120726

REACTIONS (2)
  - Weight decreased [Recovered/Resolved]
  - Pulmonary function test decreased [Recovering/Resolving]

NARRATIVE: CASE EVENT DATE: 201410
